FAERS Safety Report 6429924-0 (Version None)
Quarter: 2009Q4

REPORT INFORMATION
  Report Type: 
  Country: None (occurrence: None)
  Receive Date: 20091103
  Receipt Date: 20091019
  Transmission Date: 20100525
  Serious: Yes (Hospitalization)
  Sender: FDA-Public Use
  Company Number: 02100-JPN-07-0138

PATIENT
  Age: 75 Year
  Sex: Male
  Weight: 58.3 kg

DRUGS (6)
  1. PLETAL [Suspect]
     Indication: LACUNAR INFARCTION
     Dosage: 100 MG, BID, ORAL
     Route: 048
     Dates: start: 20050203, end: 20070301
  2. MUCOSTA (REBAMIPIDE) TABLET [Concomitant]
  3. DIOVAN [Concomitant]
  4. ADALAT (NIFEDIPINE) TABLET [Concomitant]
  5. BASEN (VOGLIBOSE) TABLET [Concomitant]
  6. HARNAL (TAMSULOSIN HYDROCHLORIDE) TABLET [Concomitant]

REACTIONS (2)
  - BLOOD CREATININE ABNORMAL [None]
  - NEPHROLITHIASIS [None]
